FAERS Safety Report 18214259 (Version 1)
Quarter: 2020Q3

REPORT INFORMATION
  Report Type: Spontaneous
  Country: US (occurrence: US)
  Receive Date: 20200831
  Receipt Date: 20200831
  Transmission Date: 20201103
  Serious: Yes (Hospitalization)
  Sender: FDA-Public Use
  Company Number: US-ALLERGAN-2032531US

PATIENT
  Sex: Male
  Weight: 64.4 kg

DRUGS (22)
  1. REVLIMID [Suspect]
     Active Substance: LENALIDOMIDE
     Indication: PLASMA CELL MYELOMA
     Dosage: ACTUAL: 5 MG 21/28 DAYS
     Route: 048
     Dates: start: 202003
  2. REVLIMID [Suspect]
     Active Substance: LENALIDOMIDE
     Dosage: 5 MG, QD
     Route: 048
     Dates: start: 201710
  3. NINLARO [Suspect]
     Active Substance: IXAZOMIB CITRATE
     Indication: PRODUCT USED FOR UNKNOWN INDICATION
     Dosage: UNK
     Route: 065
  4. ASPIRIN. [Concomitant]
     Active Substance: ASPIRIN
  5. DEXAMETHASONE. [Concomitant]
     Active Substance: DEXAMETHASONE
  6. NINLARO [Suspect]
     Active Substance: IXAZOMIB CITRATE
     Dosage: UNK
     Route: 065
     Dates: start: 201901
  7. REVLIMID [Suspect]
     Active Substance: LENALIDOMIDE
     Dosage: 10 MG, QD
     Route: 048
     Dates: start: 201707
  8. LEXAPRO [Suspect]
     Active Substance: ESCITALOPRAM OXALATE
     Indication: ANXIETY
     Dosage: UNK
     Route: 065
  9. LEXAPRO [Suspect]
     Active Substance: ESCITALOPRAM OXALATE
     Indication: DEPRESSION
  10. DONEPEZIL. [Concomitant]
     Active Substance: DONEPEZIL
  11. OMEPRAZOLE. [Concomitant]
     Active Substance: OMEPRAZOLE
  12. VELCADE [Concomitant]
     Active Substance: BORTEZOMIB
  13. REVLIMID [Suspect]
     Active Substance: LENALIDOMIDE
     Dosage: 25 MG, QD
     Route: 048
     Dates: start: 20160906
  14. ACYCLOVIR. [Concomitant]
     Active Substance: ACYCLOVIR
  15. REVLIMID [Suspect]
     Active Substance: LENALIDOMIDE
     Dosage: 25 MG? 5MG (OR 2.5 MG), DAILY
     Route: 048
     Dates: start: 201901
  16. BACTRIM [Concomitant]
     Active Substance: SULFAMETHOXAZOLE\TRIMETHOPRIM
  17. LOSARTAN. [Concomitant]
     Active Substance: LOSARTAN
  18. METFORMIN [Suspect]
     Active Substance: METFORMIN HYDROCHLORIDE
     Indication: PRODUCT USED FOR UNKNOWN INDICATION
     Dosage: UNK
     Route: 065
  19. GABAPENTIN. [Concomitant]
     Active Substance: GABAPENTIN
  20. DUTASTERIDE. [Concomitant]
     Active Substance: DUTASTERIDE
  21. PRILOSEC [Concomitant]
     Active Substance: OMEPRAZOLE MAGNESIUM
  22. ZINC. [Concomitant]
     Active Substance: ZINC

REACTIONS (12)
  - Illness [Not Recovered/Not Resolved]
  - Dyspnoea [Not Recovered/Not Resolved]
  - Diarrhoea [Not Recovered/Not Resolved]
  - Oesophageal rupture [Not Recovered/Not Resolved]
  - Body temperature increased [Not Recovered/Not Resolved]
  - Eructation [Not Recovered/Not Resolved]
  - Laboratory test abnormal [Not Recovered/Not Resolved]
  - Somnolence [Not Recovered/Not Resolved]
  - Wheezing [Not Recovered/Not Resolved]
  - Discoloured vomit [Not Recovered/Not Resolved]
  - Feeding disorder [Not Recovered/Not Resolved]
  - Cough [Not Recovered/Not Resolved]
